FAERS Safety Report 23207391 (Version 1)
Quarter: 2023Q4

REPORT INFORMATION
  Report Type: Spontaneous
  Country: US (occurrence: US)
  Receive Date: 20231120
  Receipt Date: 20231120
  Transmission Date: 20240109
  Serious: Yes (Life-Threatening, Other)
  Sender: FDA-Public Use
  Company Number: US-BRACCO-2023US03600

PATIENT
  Age: 24 Year
  Sex: Female

DRUGS (19)
  1. LUMASON [Suspect]
     Active Substance: SULFUR HEXAFLUORIDE
     Indication: Echocardiogram
     Dosage: 2 ML
     Route: 042
     Dates: start: 20230720, end: 20230720
  2. LUMASON [Suspect]
     Active Substance: SULFUR HEXAFLUORIDE
     Indication: Echocardiogram
     Dosage: 2 ML
     Route: 042
     Dates: start: 20230720, end: 20230720
  3. LUMASON [Suspect]
     Active Substance: SULFUR HEXAFLUORIDE
     Indication: Echocardiogram
     Dosage: 2 ML
     Route: 042
     Dates: start: 20230720, end: 20230720
  4. MIDAZOLAM [Concomitant]
     Active Substance: MIDAZOLAM
  5. VECURONIUM [Concomitant]
     Active Substance: VECURONIUM BROMIDE
  6. EPOPROSTENOL [Concomitant]
     Active Substance: EPOPROSTENOL
  7. NOREPINEPHRINE [Concomitant]
     Active Substance: NOREPINEPHRINE
  8. HEPARIN [Concomitant]
     Active Substance: HEPARIN SODIUM
  9. FENTANYL [Concomitant]
     Active Substance: FENTANYL\FENTANYL CITRATE
  10. METOPROLOL [Concomitant]
     Active Substance: METOPROLOL
  11. HYDROMORPHONE [Concomitant]
     Active Substance: HYDROMORPHONE
  12. OXYCODONE [Concomitant]
     Active Substance: OXYCODONE
  13. ACETAMINOPHEN [Concomitant]
     Active Substance: ACETAMINOPHEN
  14. INSULIN NOS [Concomitant]
     Active Substance: INSULIN NOS
  15. DEXTROSE [Concomitant]
     Active Substance: DEXTROSE\DEXTROSE MONOHYDRATE
  16. IBUPROFEN [Concomitant]
     Active Substance: IBUPROFEN
  17. CEFAZOLIN [Concomitant]
     Active Substance: CEFAZOLIN
  18. LIDOCAINE [Concomitant]
     Active Substance: LIDOCAINE
  19. VITAMINS [Concomitant]
     Active Substance: VITAMINS

REACTIONS (3)
  - Cardiac arrest [Recovered/Resolved]
  - Anembryonic gestation [Unknown]
  - Exposure during pregnancy [Unknown]

NARRATIVE: CASE EVENT DATE: 20230720
